FAERS Safety Report 13688973 (Version 1)
Quarter: 2017Q2

REPORT INFORMATION
  Report Type: Spontaneous
  Country: BE (occurrence: BE)
  Receive Date: 20170626
  Receipt Date: 20170626
  Transmission Date: 20170830
  Serious: Yes (Other)
  Sender: FDA-Public Use
  Company Number: BE-MYLANLABS-2017M1038084

PATIENT

DRUGS (1)
  1. AMIODARONE [Suspect]
     Active Substance: AMIODARONE
     Indication: VENTRICULAR FIBRILLATION
     Dosage: 200MG/DAY
     Route: 065

REACTIONS (5)
  - Pulmonary hypertension [Recovering/Resolving]
  - Bronchiectasis [Recovering/Resolving]
  - Bronchitis [Recovering/Resolving]
  - Electrocardiogram QT prolonged [Recovering/Resolving]
  - Pleural effusion [Recovering/Resolving]
